FAERS Safety Report 18068889 (Version 2)
Quarter: 2020Q4

REPORT INFORMATION
  Report Type: Spontaneous
  Country: CA (occurrence: CA)
  Receive Date: 20200724
  Receipt Date: 20201005
  Transmission Date: 20210113
  Serious: Yes (Other)
  Sender: FDA-Public Use
  Company Number: CA-VERTEX PHARMACEUTICALS-2020-011532

PATIENT
  Age: 43 Year
  Sex: Male

DRUGS (2)
  1. SYMDEKO [Suspect]
     Active Substance: IVACAFTOR\TEZACAFTOR
     Dosage: 100 MG TEZACAFTOR/ 150 MG IVACAFTOR
     Route: 048
     Dates: start: 202007
  2. SYMDEKO [Suspect]
     Active Substance: IVACAFTOR\TEZACAFTOR
     Indication: CYSTIC FIBROSIS
     Dosage: 100 MG TEZACAFTOR/ 150 MG IVACAFTOR, BID
     Route: 048
     Dates: start: 20200507, end: 20200511

REACTIONS (2)
  - Pulmonary venous thrombosis [Not Recovered/Not Resolved]
  - Pancreatic pseudocyst [Unknown]

NARRATIVE: CASE EVENT DATE: 20200510
